FAERS Safety Report 12346677 (Version 1)
Quarter: 2016Q2

REPORT INFORMATION
  Report Type: Spontaneous
  Country: US (occurrence: None)
  Receive Date: 20160506
  Receipt Date: 20160506
  Transmission Date: 20160815
  Serious: No
  Sender: FDA-Public Use
  Company Number: None

PATIENT
  Age: 30 Year
  Sex: Female
  Weight: 54.43 kg

DRUGS (13)
  1. CYANOCOBALAMIN INJECTION [Concomitant]
  2. ALPRAZOLAM ER [Concomitant]
     Active Substance: ALPRAZOLAM
  3. FOLIC ACID. [Concomitant]
     Active Substance: FOLIC ACID
  4. BIOTIN [Concomitant]
     Active Substance: BIOTIN
  5. MONTELEUKAST SODIUM [Concomitant]
  6. ADDERALL XR [Concomitant]
     Active Substance: AMPHETAMINE ASPARTATE\AMPHETAMINE SULFATE\DEXTROAMPHETAMINE SACCHARATE\DEXTROAMPHETAMINE SULFATE
  7. CLARITIN [Concomitant]
     Active Substance: LORATADINE
  8. RITUXAN [Suspect]
     Active Substance: RITUXIMAB
     Indication: RHEUMATOID ARTHRITIS
     Dosage: INTO A VEIN
     Route: 042
     Dates: start: 20160413, end: 20160427
  9. SKYLA [Concomitant]
     Active Substance: LEVONORGESTREL
  10. RASUVO [Concomitant]
     Active Substance: METHOTREXATE SODIUM
  11. TIZANIDINE. [Concomitant]
     Active Substance: TIZANIDINE
  12. VITAMIN D [Concomitant]
     Active Substance: CHOLECALCIFEROL
  13. OIL OF OREGANO [Concomitant]

REACTIONS (6)
  - Abdominal pain upper [None]
  - Nausea [None]
  - Constipation [None]
  - Decreased appetite [None]
  - Abdominal pain [None]
  - Abdominal discomfort [None]

NARRATIVE: CASE EVENT DATE: 20160504
